FAERS Safety Report 21128675 (Version 3)
Quarter: 2022Q4

REPORT INFORMATION
  Report Type: Spontaneous
  Country: CA (occurrence: CA)
  Receive Date: 20220725
  Receipt Date: 20221031
  Transmission Date: 20230112
  Serious: Yes (Other)
  Sender: FDA-Public Use
  Company Number: CA-SA-SAC20220722000101

PATIENT
  Sex: Male
  Weight: 98 kg

DRUGS (16)
  1. IRBESARTAN [Suspect]
     Active Substance: IRBESARTAN
     Indication: Product used for unknown indication
     Dosage: UNK UNK, QD
     Route: 065
     Dates: start: 202105
  2. METFORMIN HYDROCHLORIDE [Suspect]
     Active Substance: METFORMIN HYDROCHLORIDE
     Indication: Product use in unapproved indication
     Dosage: 3 DF,2 EVERY 1 DAYS
     Route: 065
     Dates: start: 202105
  3. AMLODIPINE BESYLATE [Suspect]
     Active Substance: AMLODIPINE BESYLATE
     Indication: Product used for unknown indication
     Dosage: UNK
     Dates: start: 202105
  4. GLICLAZIDE [Suspect]
     Active Substance: GLICLAZIDE
     Indication: Product used for unknown indication
     Dosage: UNK, QD
     Dates: start: 202105
  5. MAYZENT [Suspect]
     Active Substance: SIPONIMOD
     Indication: Secondary progressive multiple sclerosis
     Dosage: 1 MG, QD
     Route: 048
  6. MAYZENT [Suspect]
     Active Substance: SIPONIMOD
     Dosage: 2 MG, QD
     Route: 048
     Dates: start: 20220315
  7. PERINDOPRIL [Suspect]
     Active Substance: PERINDOPRIL
     Indication: Product used for unknown indication
     Dosage: UNK UNK, QD
     Dates: start: 202105
  8. ROSUVASTATIN [Suspect]
     Active Substance: ROSUVASTATIN
     Indication: Product used for unknown indication
     Dosage: UNK UNK, QD
     Dates: start: 202105
  9. TRESIBA [Concomitant]
     Active Substance: INSULIN DEGLUDEC
     Indication: Product used for unknown indication
     Dosage: UNK
     Route: 058
  10. SEMAGLUTIDE [Concomitant]
     Active Substance: SEMAGLUTIDE
     Indication: Product used for unknown indication
     Dosage: UNK UNK, QW
     Route: 058
     Dates: start: 202105
  11. JARDIANCE [Concomitant]
     Active Substance: EMPAGLIFLOZIN
     Indication: Product used for unknown indication
     Dosage: UNK UNK, QD
     Dates: start: 202105
  12. CHONDROITIN SULFATE (BOVINE) [Concomitant]
     Active Substance: CHONDROITIN SULFATE (BOVINE)
     Indication: Product used for unknown indication
     Dosage: UNK UNK, QD
  13. SODIUM SALICYLATE [Concomitant]
     Active Substance: SODIUM SALICYLATE
     Indication: Product used for unknown indication
     Dosage: UNK UNK, QD
  14. SODIUM BROMIDE [Concomitant]
     Active Substance: SODIUM BROMIDE
     Indication: Product used for unknown indication
     Dosage: UNK UNK, QD
  15. CHONDROITIN SULFATE SODIUM;SALICYLATE SODIUM;SODIUM BROMIDE [Concomitant]
     Indication: Product used for unknown indication
     Dosage: UNK UNK, QD
     Route: 065
     Dates: start: 202105
  16. INSULIN ASPART [Concomitant]
     Active Substance: INSULIN ASPART
     Indication: Product used for unknown indication
     Dosage: UNK, Q4D
     Dates: start: 202105

REACTIONS (12)
  - Dysmetria [Unknown]
  - Gait spastic [Unknown]
  - Haematuria [Unknown]
  - Hypokinesia [Unknown]
  - Lymphopenia [Unknown]
  - Muscle spasticity [Unknown]
  - Muscular weakness [Unknown]
  - Musculoskeletal discomfort [Unknown]
  - Obstructive sleep apnoea syndrome [Unknown]
  - Urinary incontinence [Not Recovered/Not Resolved]
  - Urine abnormality [Unknown]
  - White blood cell count decreased [Unknown]
